FAERS Safety Report 5004104-4 (Version None)
Quarter: 2006Q2

REPORT INFORMATION
  Report Type: 
  Country: None (occurrence: None)
  Receive Date: 20060511
  Receipt Date: 20060428
  Transmission Date: 20061013
  Serious: Yes (Other)
  Sender: FDA-Public Use
  Company Number: 2006046503

PATIENT
  Age: 29 Year
  Sex: Female

DRUGS (5)
  1. GEODON [Suspect]
     Indication: BIPOLAR DISORDER
     Dosage: 160 MG (80 MG , 2 IN 1 D)
  2. XANAX [Suspect]
     Indication: ANXIETY
     Dosage: 1 MG
  3. KLONOPIN [Suspect]
     Indication: ANXIETY
     Dosage: 3 MG (1 MG, 3 IN 1 D)
  4. LAMICTAL [Suspect]
     Indication: ILL-DEFINED DISORDER
     Dosage: 100 MG
  5. LUVOX [Suspect]
     Indication: ILL-DEFINED DISORDER
     Dosage: 100 MG

REACTIONS (3)
  - CAESAREAN SECTION [None]
  - DRUG EXPOSURE DURING PREGNANCY [None]
  - PREGNANCY [None]
